FAERS Safety Report 6121294-0 (Version None)
Quarter: 2009Q1

REPORT INFORMATION
  Report Type: 
  Country: None (occurrence: None)
  Receive Date: 20090317
  Receipt Date: 20090313
  Transmission Date: 20090719
  Serious: Yes (Hospitalization, Other)
  Sender: FDA-Public Use
  Company Number: FR-RB-011749-09

PATIENT
  Age: 19 Year
  Sex: Male

DRUGS (1)
  1. SUBUTEX [Suspect]
     Indication: DRUG USE FOR UNKNOWN INDICATION
     Dosage: DOSE UNKNOWN
     Route: 045

REACTIONS (6)
  - CENTRAL NERVOUS SYSTEM LESION [None]
  - CSF TEST ABNORMAL [None]
  - INCORRECT ROUTE OF DRUG ADMINISTRATION [None]
  - PARAESTHESIA [None]
  - SKIN LESION [None]
  - SUBSTANCE ABUSE [None]
